FAERS Safety Report 6110253-X (Version None)
Quarter: 2009Q1

REPORT INFORMATION
  Report Type: 
  Country: None (occurrence: None)
  Receive Date: 20090309
  Receipt Date: 20090309
  Transmission Date: 20090719
  Serious: No
  Sender: FDA-Public Use
  Company Number: None

PATIENT
  Age: 53 Year
  Sex: Male
  Weight: 90.7194 kg

DRUGS (2)
  1. ARTICAINE 4% SOLUTION [Suspect]
     Indication: ANAESTHESIA
     Dates: start: 20080618, end: 20080618
  2. ARTICAINE 4% SOLUTION [Suspect]
     Indication: ENDODONTIC PROCEDURE
     Dates: start: 20080618, end: 20080618

REACTIONS (9)
  - ANAESTHETIC COMPLICATION [None]
  - ANXIETY [None]
  - DISTURBANCE IN ATTENTION [None]
  - DIZZINESS [None]
  - HYPOAESTHESIA ORAL [None]
  - NERVE INJURY [None]
  - PARAESTHESIA [None]
  - POST PROCEDURAL COMPLICATION [None]
  - VERTIGO [None]
